FAERS Safety Report 6601093-3 (Version None)
Quarter: 2010Q1

REPORT INFORMATION
  Report Type: 
  Country: None (occurrence: None)
  Receive Date: 20100225
  Receipt Date: 20100218
  Transmission Date: 20100710
  Serious: Yes (Hospitalization)
  Sender: FDA-Public Use
  Company Number: NL-MPIJNJ-2009-05255

PATIENT

DRUGS (6)
  1. VELCADE [Suspect]
     Indication: DRUG USE FOR UNKNOWN INDICATION
     Dosage: UNK
     Route: 042
     Dates: start: 20090421, end: 20090501
  2. VELCADE [Suspect]
     Dosage: UNK
     Dates: end: 20091127
  3. DIFLUCAN [Concomitant]
     Indication: PROPHYLAXIS
     Dosage: 200 MG, UNK
     Route: 048
     Dates: start: 20090421
  4. ZELITREX                           /01269701/ [Concomitant]
     Indication: PROPHYLAXIS
     Dosage: 500 MG, UNK
     Route: 048
     Dates: start: 20090421
  5. ASCAL                              /00002702/ [Concomitant]
     Dosage: 100 MG, UNK
     Route: 048
     Dates: start: 20090414
  6. BACTRIMEL [Concomitant]
     Indication: PROPHYLAXIS
     Dosage: UNK
     Route: 048
     Dates: start: 20090414, end: 20090603

REACTIONS (3)
  - GASTROINTESTINAL DISORDER [None]
  - LIVER DISORDER [None]
  - NAUSEA [None]
